FAERS Safety Report 5506153-6 (Version None)
Quarter: 2007Q4

REPORT INFORMATION
  Report Type: 
  Country: None (occurrence: None)
  Receive Date: 20071105
  Receipt Date: 20071026
  Transmission Date: 20080405
  Serious: Yes (Other)
  Sender: FDA-Public Use
  Company Number: PHBS2007JP18069

PATIENT
  Age: 62 Year
  Sex: Female

DRUGS (2)
  1. AREDIA [Suspect]
     Route: 042
  2. ZOMETA [Suspect]
     Route: 042

REACTIONS (2)
  - OSTEONECROSIS [None]
  - PAIN [None]
